FAERS Safety Report 5234273-2 (Version None)
Quarter: 2007Q1

REPORT INFORMATION
  Report Type: 
  Country: None (occurrence: None)
  Receive Date: 20070209
  Receipt Date: 20070130
  Transmission Date: 20070707
  Serious: Yes (Other)
  Sender: FDA-Public Use
  Company Number: US-NOVOPROD-260473

PATIENT
  Age: 42 Year
  Sex: Male
  Weight: 81.633 kg

DRUGS (1)
  1. LEVEMIR [Suspect]
     Indication: INSULIN-REQUIRING TYPE II DIABETES MELLITUS
     Dosage: 15 IU, QD
     Route: 058
     Dates: start: 20060701, end: 20060901

REACTIONS (1)
  - DERMATITIS ACNEIFORM [None]
